FAERS Safety Report 24388592 (Version 1)
Quarter: 2024Q4

REPORT INFORMATION
  Report Type: Spontaneous
  Country: US (occurrence: US)
  Receive Date: 20241002
  Receipt Date: 20241002
  Transmission Date: 20250115
  Serious: Yes (Other)
  Sender: CSL BEHRING
  Company Number: US-BEH-2024179564

PATIENT
  Age: 23 Year
  Sex: Female

DRUGS (51)
  1. HIZENTRA [Suspect]
     Active Substance: HUMAN IMMUNOGLOBULIN G
     Dosage: 15 G, QW
     Route: 058
     Dates: start: 20220216
  2. ADVAIR HFA [Concomitant]
     Active Substance: FLUTICASONE PROPIONATE\SALMETEROL XINAFOATE
  3. AIMOVIG [Concomitant]
     Active Substance: ERENUMAB-AOOE
  4. ALBUTEROL SULFATE [Concomitant]
     Active Substance: ALBUTEROL SULFATE
  5. ALBUTEROL [Concomitant]
     Active Substance: ALBUTEROL
  6. ATROVENT HFA [Concomitant]
     Active Substance: IPRATROPIUM BROMIDE
  7. AZELASTINE [Concomitant]
     Active Substance: AZELASTINE
  8. AZITHROMYCIN [Concomitant]
     Active Substance: AZITHROMYCIN
     Dosage: 250 MG
  9. AZITHROMYCIN [Concomitant]
     Active Substance: AZITHROMYCIN
     Dosage: 500 MG
  10. BENZONATATE [Concomitant]
     Active Substance: BENZONATATE
  11. BOTOX [Concomitant]
     Active Substance: ONABOTULINUMTOXINA
  12. CLONAZEPAM [Concomitant]
     Active Substance: CLONAZEPAM
  13. CLONIDINE HYDROCHLORIDE [Concomitant]
     Active Substance: CLONIDINE HYDROCHLORIDE
  14. CYANOCOBALAMIN [Concomitant]
     Active Substance: CYANOCOBALAMIN
  15. CYCLOBENZAPRINE [Concomitant]
     Active Substance: CYCLOBENZAPRINE
  16. DIAZEPAM [Concomitant]
     Active Substance: DIAZEPAM
  17. DICYCLOMINE [Concomitant]
     Active Substance: DICYCLOMINE HYDROCHLORIDE
  18. DIVALPROEX SODIUM [Concomitant]
     Active Substance: DIVALPROEX SODIUM
  19. EPIDIOLEX [Concomitant]
     Active Substance: CANNABIDIOL
  20. EPINEPHRINE [Concomitant]
     Active Substance: EPINEPHRINE
  21. ERYTHROMYCIN [Concomitant]
     Active Substance: ERYTHROMYCIN
  22. EZETIMIBE [Concomitant]
     Active Substance: EZETIMIBE
  23. FAMOTIDINE [Concomitant]
     Active Substance: FAMOTIDINE
  24. FLUCONAZOLE [Concomitant]
     Active Substance: FLUCONAZOLE
  25. FLUTICASONE [Concomitant]
     Active Substance: FLUTICASONE
  26. GABAPENTIN [Concomitant]
     Active Substance: GABAPENTIN
  27. HYDROCORTISONE [Concomitant]
     Active Substance: HYDROCORTISONE
  28. HYDROXYZINE HYDROCHLORIDE [Concomitant]
     Active Substance: HYDROXYZINE HYDROCHLORIDE
  29. HYOSCYAMINE [Concomitant]
     Active Substance: HYOSCYAMINE
  30. IBUPROFEN [Concomitant]
     Active Substance: IBUPROFEN
  31. LAGEVRIO [Concomitant]
     Active Substance: MOLNUPIRAVIR
  32. LAMOTRIGINE [Concomitant]
     Active Substance: LAMOTRIGINE
     Dosage: 200 MG
  33. LAMOTRIGINE [Concomitant]
     Active Substance: LAMOTRIGINE
     Dosage: 25 MG
  34. LAMOTRIGINE [Concomitant]
     Active Substance: LAMOTRIGINE
     Dosage: 100 MG
  35. LEVETIRACETAM [Concomitant]
     Active Substance: LEVETIRACETAM
  36. LORATADINE [Concomitant]
     Active Substance: LORATADINE
     Dosage: 0.5 MG
  37. LORAZEPAM [Concomitant]
     Active Substance: LORAZEPAM
     Dosage: 1 MG
  38. MEDROXYPROGESTERONE ACETATE [Concomitant]
     Active Substance: MEDROXYPROGESTERONE ACETATE
  39. MONTELUKAST [Concomitant]
     Active Substance: MONTELUKAST
  40. OMEPRAZOLE [Concomitant]
     Active Substance: OMEPRAZOLE
  41. ONDANSETRON [Concomitant]
     Active Substance: ONDANSETRON
  42. PANTOPRAZOLE [Concomitant]
     Active Substance: PANTOPRAZOLE
  43. PERMETHRIN [Concomitant]
     Active Substance: PERMETHRIN
  44. PREDNISONE [Concomitant]
     Active Substance: PREDNISONE
  45. QVAR REDIHALER [Concomitant]
     Active Substance: BECLOMETHASONE DIPROPIONATE
  46. SCOPOLAMINE [Concomitant]
     Active Substance: SCOPOLAMINE
  47. SPIRIVA [Concomitant]
     Active Substance: TIOTROPIUM BROMIDE MONOHYDRATE
  48. SUCRALFATE [Concomitant]
     Active Substance: SUCRALFATE
  49. TOBRAMYCIN AND DEXAMETHASONE [Concomitant]
     Active Substance: DEXAMETHASONE\TOBRAMYCIN
  50. VALTOCO [Concomitant]
     Active Substance: DIAZEPAM
  51. VERAPAMIL [Concomitant]
     Active Substance: VERAPAMIL HYDROCHLORIDE

REACTIONS (1)
  - Drug ineffective [Unknown]
